FAERS Safety Report 17740682 (Version 9)
Quarter: 2020Q4

REPORT INFORMATION
  Report Type: Report from Study
  Country: US (occurrence: US)
  Receive Date: 20200504
  Receipt Date: 20201202
  Transmission Date: 20210113
  Serious: Yes (Other)
  Sender: FDA-Public Use
  Company Number: US-DSJP-DSU-2020-112764

PATIENT
  Sex: Male

DRUGS (2)
  1. PEXIDARTINIB [Suspect]
     Active Substance: PEXIDARTINIB
     Dosage: 400 MG, BID
     Route: 048
     Dates: start: 20200415, end: 20200904
  2. PEXIDARTINIB [Suspect]
     Active Substance: PEXIDARTINIB
     Indication: NEOPLASM
     Dosage: 200MG QAM, 400MG QPM
     Route: 048
     Dates: start: 20200415

REACTIONS (7)
  - Dyspepsia [Not Recovered/Not Resolved]
  - Surgery [Unknown]
  - Product dose omission issue [Unknown]
  - Liver injury [Not Recovered/Not Resolved]
  - Therapeutic response unexpected [Not Recovered/Not Resolved]
  - Procedural pain [Unknown]
  - Hair colour changes [Recovered/Resolved]

NARRATIVE: CASE EVENT DATE: 2020
